FAERS Safety Report 26155523 (Version 1)
Quarter: 2025Q4

REPORT INFORMATION
  Report Type: Spontaneous
  Country: CN (occurrence: CN)
  Receive Date: 20251215
  Receipt Date: 20251215
  Transmission Date: 20260118
  Serious: Yes (Hospitalization)
  Sender: ALKEM
  Company Number: None

PATIENT
  Age: 26 Year
  Sex: Male

DRUGS (7)
  1. TACROLIMUS [Interacting]
     Active Substance: TACROLIMUS
     Indication: Nephrotic syndrome
     Dosage: 1 MILLIGRAM, BID (EVERY 12 HOUR)
     Route: 065
     Dates: start: 2019
  2. PREDNISONE [Interacting]
     Active Substance: PREDNISONE
     Indication: Nephrotic syndrome
     Dosage: 60 MILLIGRAM, QD (EVERY 1 DAY)
     Route: 065
     Dates: start: 201903
  3. PREDNISONE [Interacting]
     Active Substance: PREDNISONE
     Dosage: 30 MILLIGRAM, QD (EVERY 1 DAY)
     Route: 065
     Dates: start: 2019
  4. PREDNISONE [Interacting]
     Active Substance: PREDNISONE
     Dosage: 50 MILLIGRAM, QD (EVERY 1 DAY)
     Route: 065
     Dates: start: 2019
  5. RIFAMPIN [Interacting]
     Active Substance: RIFAMPIN
     Indication: Tuberculous pleurisy
     Dosage: 0.45 GRAM, QD (EVERY 1 DAY)
     Route: 065
     Dates: start: 2018
  6. ISONIAZID [Concomitant]
     Active Substance: ISONIAZID
     Indication: Tuberculous pleurisy
     Dosage: 0.4 GRAM, QD (EVERY 1 DAY)
     Route: 065
     Dates: start: 2018
  7. METHYLPREDNISOLONE [Concomitant]
     Active Substance: METHYLPREDNISOLONE
     Indication: Nephrotic syndrome
     Dosage: 48 MILLIGRAM, QD (EVERY 1 DAY)
     Route: 065
     Dates: start: 2019

REACTIONS (3)
  - Immunosuppressant drug level decreased [Recovered/Resolved]
  - Drug interaction [Unknown]
  - Drug ineffective [Unknown]

NARRATIVE: CASE EVENT DATE: 20190101
